FAERS Safety Report 21405170 (Version 2)
Quarter: 2023Q2

REPORT INFORMATION
  Report Type: Spontaneous
  Country: VE (occurrence: VE)
  Receive Date: 20221004
  Receipt Date: 20230518
  Transmission Date: 20230722
  Serious: Yes (Hospitalization)
  Sender: FDA-Public Use
  Company Number: VE-NOVARTISPH-NVSC2022VE221093

PATIENT
  Sex: Female

DRUGS (2)
  1. GLIVEC [Suspect]
     Active Substance: IMATINIB MESYLATE
     Indication: Chronic myeloid leukaemia
     Dosage: 300 MG (3 X 100 MG)
     Route: 065
  2. HYDREA [Concomitant]
     Active Substance: HYDROXYUREA
     Indication: Product used for unknown indication
     Dosage: UNK
     Route: 065

REACTIONS (8)
  - Myocardial necrosis marker increased [Unknown]
  - Hypotension [Unknown]
  - Malaise [Unknown]
  - Asthenia [Unknown]
  - Arrhythmia [Unknown]
  - Blood creatinine increased [Unknown]
  - Blood urea increased [Unknown]
  - Product availability issue [Unknown]
